FAERS Safety Report 6244986-1 (Version None)
Quarter: 2009Q2

REPORT INFORMATION
  Report Type: 
  Country: None (occurrence: None)
  Receive Date: 20090623
  Receipt Date: 20090623
  Transmission Date: 20091009
  Serious: Yes (Other)
  Sender: FDA-Public Use
  Company Number: None

PATIENT
  Age: 47 Year
  Sex: Female
  Weight: 105.2345 kg

DRUGS (1)
  1. SPRINTEC [Suspect]
     Indication: MENSTRUATION IRREGULAR
     Dosage: 1 TABLET 1 DAILY PO
     Route: 048
     Dates: start: 20090526, end: 20090605

REACTIONS (1)
  - DEEP VEIN THROMBOSIS [None]
